FAERS Safety Report 15295421 (Version 2)
Quarter: 2018Q4

REPORT INFORMATION
  Report Type: Spontaneous
  Country: ES (occurrence: ES)
  Receive Date: 20180820
  Receipt Date: 20181218
  Transmission Date: 20190204
  Serious: Yes (Hospitalization, Other)
  Sender: FDA-Public Use
  Company Number: PHHY2018ES073267

PATIENT
  Age: 70 Year

DRUGS (1)
  1. ATORVASTATIN [Suspect]
     Active Substance: ATORVASTATIN
     Indication: MYOCARDIAL ISCHAEMIA
     Dosage: 40 MG
     Route: 065

REACTIONS (5)
  - Necrosis [Unknown]
  - Dysphagia [Unknown]
  - Weight decreased [Unknown]
  - Immune-mediated necrotising myopathy [Recovered/Resolved]
  - Muscular weakness [Unknown]
